FAERS Safety Report 4568310-5 (Version None)
Quarter: 2005Q1

REPORT INFORMATION
  Report Type: 
  Country: None (occurrence: None)
  Receive Date: 20050202
  Receipt Date: 20050201
  Transmission Date: 20050727
  Serious: Yes (Hospitalization)
  Sender: FDA-Public Use
  Company Number: 2005001920

PATIENT
  Age: 46 Year
  Sex: Male
  Weight: 150 kg

DRUGS (14)
  1. NARAMIG [Suspect]
     Dosage: 15MG SINGLE DOSE
     Route: 048
  2. IBUPROFEN [Suspect]
     Dosage: 24000MG SINGLE DOSE
     Route: 048
  3. ASS 300 [Suspect]
     Dosage: 2000MG SINGLE DOSE
     Route: 048
  4. VOLTAREN [Suspect]
     Dosage: 2000MG SINGLE DOSE
     Route: 048
  5. NOVALGIN [Suspect]
     Dosage: 5000MG SINGLE DOSE
     Route: 048
  6. TRAMAL LONG [Suspect]
     Dosage: 2800MG SINGLE DOSE
     Route: 048
  7. KATADOLON [Suspect]
     Dosage: 10TAB SINGLE DOSE
     Route: 048
  8. BIKALM [Suspect]
     Dosage: 10TAB SINGLE DOSE
     Route: 048
  9. BEXTRA [Suspect]
     Dosage: 30TAB SINGLE DOSE
     Route: 048
  10. NOCTAMID [Suspect]
     Dosage: 20TAB SINGLE DOSE
     Route: 048
  11. ACC 600 [Suspect]
     Dosage: 10TAB SINGLE DOSE
     Route: 048
  12. FORADIL [Suspect]
     Dosage: 10CAP SINGLE DOSE
     Route: 048
  13. LOPEDIUM [Suspect]
     Dosage: 20MG SINGLE DOSE
     Route: 048
  14. TILICOMP BETA [Suspect]
     Dosage: 10TAB SINGLE DOSE
     Route: 048

REACTIONS (2)
  - INTENTIONAL MISUSE [None]
  - SOMNOLENCE [None]
